FAERS Safety Report 15501248 (Version 3)
Quarter: 2018Q4

REPORT INFORMATION
  Report Type: Spontaneous
  Country: US (occurrence: US)
  Receive Date: 20181015
  Receipt Date: 20181128
  Transmission Date: 20190205
  Serious: No
  Sender: FDA-Public Use
  Company Number: US-009507513-1810USA006429

PATIENT
  Age: 65 Year
  Sex: Male

DRUGS (1)
  1. PROVENTIL [Suspect]
     Active Substance: ALBUTEROL
     Indication: RESPIRATION ABNORMAL
     Dosage: UNK
     Route: 055
     Dates: start: 20181002

REACTIONS (3)
  - Wrong technique in product usage process [Unknown]
  - Product dose omission [Unknown]
  - Dyspnoea [Not Recovered/Not Resolved]

NARRATIVE: CASE EVENT DATE: 20181004
